FAERS Safety Report 10447382 (Version 1)
Quarter: 2014Q3

REPORT INFORMATION
  Report Type: Spontaneous
  Country: US (occurrence: US)
  Receive Date: 20140911
  Receipt Date: 20140911
  Transmission Date: 20150326
  Serious: No
  Sender: FDA-Public Use
  Company Number: US-BEH-2013037794

PATIENT
  Sex: Male
  Weight: 135 kg

DRUGS (1)
  1. ZEMAIRA [Suspect]
     Active Substance: .ALPHA.1-PROTEINASE INHIBITOR HUMAN
     Indication: ALPHA-1 ANTI-TRYPSIN DEFICIENCY
     Dosage: 8 VIALS INFUSED PER WEEK
     Route: 042

REACTIONS (4)
  - Dyspnoea [Unknown]
  - Headache [Unknown]
  - Pain [Unknown]
  - Lethargy [Unknown]
